FAERS Safety Report 9726919 (Version 2)
Quarter: 2013Q4

REPORT INFORMATION
  Report Type: Report from Study
  Country: US (occurrence: US)
  Receive Date: 20131203
  Receipt Date: 20131216
  Transmission Date: 20140711
  Serious: Yes (Death)
  Sender: FDA-Public Use
  Company Number: US-ASTELLAS-2013US012526

PATIENT
  Sex: 0

DRUGS (1)
  1. ERLOTINIB TABLET [Suspect]
     Indication: PANCREATIC CARCINOMA
     Dosage: UNK, UID/QD
     Route: 065
     Dates: end: 20131009

REACTIONS (1)
  - Pancreatic carcinoma metastatic [Fatal]
